FAERS Safety Report 4534424-9 (Version None)
Quarter: 2004Q4

REPORT INFORMATION
  Report Type: 
  Country: None (occurrence: None)
  Receive Date: 20041220
  Receipt Date: 20041220
  Transmission Date: 20050328
  Serious: Yes (Other)
  Sender: FDA-Public Use
  Company Number: None

PATIENT
  Sex: Female
  Weight: 53.7966 kg

DRUGS (2)
  1. CARBOPLATIN [Suspect]
     Dosage: DAY 1    IV  FIRST COURSE
     Route: 042
     Dates: start: 20040816
  2. BENADRYL [Concomitant]

REACTIONS (3)
  - CHEST DISCOMFORT [None]
  - DYSPNOEA [None]
  - INFUSION RELATED REACTION [None]
